FAERS Safety Report 6262046-0 (Version None)
Quarter: 2009Q3

REPORT INFORMATION
  Report Type: 
  Country: None (occurrence: None)
  Receive Date: 20090709
  Receipt Date: 20090625
  Transmission Date: 20100115
  Serious: Yes (Death, Hospitalization)
  Sender: FDA-Public Use
  Company Number: FR-GENENTECH-282840

PATIENT
  Sex: Female

DRUGS (3)
  1. RITUXIMAB [Suspect]
     Indication: CHRONIC LYMPHOCYTIC LEUKAEMIA
     Dosage: 870 MG, QD
     Route: 042
     Dates: start: 20080820, end: 20080820
  2. FLUDARABINE PHOSPHATE [Suspect]
     Indication: CHRONIC LYMPHOCYTIC LEUKAEMIA
     Dosage: 70 MG, QD
     Route: 002
     Dates: start: 20080820, end: 20080822
  3. ENDOXAN [Suspect]
     Indication: NEOPLASM MALIGNANT
     Dosage: 450 MG, QD
     Route: 002
     Dates: start: 20080820, end: 20080822

REACTIONS (3)
  - HISTIOCYTOSIS HAEMATOPHAGIC [None]
  - LIVER INJURY [None]
  - PANCYTOPENIA [None]
